FAERS Safety Report 10701633 (Version 2)
Quarter: 2015Q2

REPORT INFORMATION
  Report Type: Spontaneous
  Country: JP (occurrence: JP)
  Receive Date: 20150109
  Receipt Date: 20150520
  Transmission Date: 20150821
  Serious: Yes (Death, Hospitalization)
  Sender: FDA-Public Use
  Company Number: JP-BAYER-2015-003198

PATIENT
  Age: 78 Year
  Sex: Female
  Weight: 42 kg

DRUGS (8)
  1. FERRUM [Concomitant]
     Active Substance: FERROUS FUMARATE
     Dosage: DAILY DOSE 200 MG
     Route: 048
     Dates: start: 20140801, end: 20140807
  2. LOXOPROFEN [Concomitant]
     Active Substance: LOXOPROFEN
     Indication: COLON CANCER
     Dosage: DAILY DOSE 160 MG
     Route: 048
     Dates: start: 20140801, end: 20140801
  3. STIVARGA [Suspect]
     Active Substance: REGORAFENIB
     Indication: COLORECTAL CANCER
     Dosage: 120MG, QD
     Route: 048
     Dates: start: 20140802, end: 20140810
  4. LOXOPROFEN [Concomitant]
     Active Substance: LOXOPROFEN
     Indication: COLON CANCER
     Dosage: DAILY DOSE 120 MG
     Route: 048
     Dates: start: 20140802, end: 20140810
  5. REBAMIPIDE [Concomitant]
     Active Substance: REBAMIPIDE
     Indication: PROPHYLAXIS AGAINST GASTROINTESTINAL ULCER
     Dosage: DAILY DOSE 300 MG
     Route: 048
     Dates: start: 20140801, end: 20140922
  6. STIVARGA [Suspect]
     Active Substance: REGORAFENIB
     Indication: COLORECTAL CANCER
     Dosage: 160 MG, QD
     Route: 048
     Dates: start: 20140801, end: 20140801
  7. DECADRON [Suspect]
     Active Substance: DEXAMETHASONE
     Indication: MALAISE
     Dosage: DAILY DOSE 2 MG
     Route: 048
     Dates: start: 20140801, end: 20140810
  8. LANSOPRAZOLE. [Concomitant]
     Active Substance: LANSOPRAZOLE
     Indication: PROPHYLAXIS AGAINST GASTROINTESTINAL ULCER
     Dosage: DAILY DOSE 30 MG
     Route: 048
     Dates: start: 20140801, end: 20141021

REACTIONS (2)
  - Colon cancer [Fatal]
  - Gastrointestinal perforation [Recovered/Resolved]

NARRATIVE: CASE EVENT DATE: 20140810
